FAERS Safety Report 7519374-8 (Version None)
Quarter: 2011Q2

REPORT INFORMATION
  Report Type: 
  Country: None (occurrence: None)
  Receive Date: 20110602
  Receipt Date: 20110527
  Transmission Date: 20111010
  Serious: Yes (Death, Hospitalization)
  Sender: FDA-Public Use
  Company Number: PHHY2011HU46905

PATIENT
  Age: 87 Year
  Sex: Female
  Weight: 40 kg

DRUGS (3)
  1. AMLODIPINE [Suspect]
     Dosage: 2.5 MG, UNK
  2. HYGROTON [Suspect]
     Indication: OEDEMA PERIPHERAL
     Dosage: 12.5 MG, QW
     Dates: start: 20020625
  3. METOPROLOL TARTRATE [Concomitant]
     Dosage: 50 MG, UNK

REACTIONS (27)
  - RENAL IMPAIRMENT [None]
  - HYPERTHYROIDISM [None]
  - BLOOD PRESSURE DECREASED [None]
  - HEART RATE DECREASED [None]
  - BLOOD CHOLESTEROL INCREASED [None]
  - NAUSEA [None]
  - ACIDOSIS [None]
  - WEIGHT DECREASED [None]
  - PSYCHOMOTOR RETARDATION [None]
  - URINARY INCONTINENCE [None]
  - HYPONATRAEMIA [None]
  - WATER INTOXICATION [None]
  - OEDEMA PERIPHERAL [None]
  - CONFUSIONAL STATE [None]
  - FALL [None]
  - THYROID NEOPLASM [None]
  - ASTHENIA [None]
  - FATIGUE [None]
  - GAIT DISTURBANCE [None]
  - DIZZINESS [None]
  - EYE DISORDER [None]
  - EATING DISORDER SYMPTOM [None]
  - DYSPNOEA [None]
  - ABNORMAL BEHAVIOUR [None]
  - DYSURIA [None]
  - KYPHOSIS [None]
  - CONSTIPATION [None]
